FAERS Safety Report 8840442 (Version 1)
Quarter: 2012Q4

REPORT INFORMATION
  Report Type: 
  Country: IT (occurrence: IT)
  Receive Date: 20121015
  Receipt Date: 20121015
  Transmission Date: 20130627
  Serious: Yes (Hospitalization)
  Sender: FDA-Public Use
  Company Number: IT-TEVA-363244ISR

PATIENT
  Age: 72 Year
  Sex: Male

DRUGS (1)
  1. MESALAZINE [Suspect]
     Indication: GASTROINTESTINAL INFLAMMATION
     Dosage: 800 Milligram Daily;
     Route: 048
     Dates: start: 20120301, end: 20120707

REACTIONS (1)
  - Interstitial lung disease [Recovering/Resolving]
